FAERS Safety Report 5881177-8 (Version None)
Quarter: 2008Q3

REPORT INFORMATION
  Report Type: 
  Country: None (occurrence: None)
  Receive Date: 20080912
  Receipt Date: 20080620
  Transmission Date: 20090109
  Serious: No
  Sender: FDA-Public Use
  Company Number: US-ABBOTT-08P-163-0459050-00

PATIENT
  Sex: Female
  Weight: 56.296 kg

DRUGS (4)
  1. HUMIRA [Suspect]
     Indication: PSORIATIC ARTHROPATHY
     Route: 058
     Dates: start: 20071201
  2. HUMIRA [Suspect]
     Route: 058
     Dates: start: 20080614
  3. METHOTREXATE [Concomitant]
     Indication: PSORIATIC ARTHROPATHY
     Dosage: 2.5 MG, 4 PILLS WEEKLY
     Route: 048
     Dates: start: 20071201
  4. KAPSOVIT [Concomitant]
     Indication: VITAMIN SUPPLEMENTATION
     Route: 048

REACTIONS (6)
  - ARTHRALGIA [None]
  - DRUG DOSE OMISSION [None]
  - FATIGUE [None]
  - GROWING PAINS [None]
  - HYPOAESTHESIA [None]
  - INSOMNIA [None]
